FAERS Safety Report 16677264 (Version 3)
Quarter: 2019Q4

REPORT INFORMATION
  Report Type: Spontaneous
  Country: US (occurrence: US)
  Receive Date: 20190807
  Receipt Date: 20191023
  Transmission Date: 20200122
  Serious: Yes (Other)
  Sender: FDA-Public Use
  Company Number: US-PFIZER INC-2016463488

PATIENT
  Age: 51 Year
  Sex: Male
  Weight: 124 kg

DRUGS (7)
  1. LYRICA [Suspect]
     Active Substance: PREGABALIN
     Dosage: 300 MG, 4X/DAY (MOUTH 4 TIMES DAILY WITH FOOD )
     Route: 048
     Dates: start: 20190321, end: 2019
  2. LYRICA [Suspect]
     Active Substance: PREGABALIN
     Indication: POLYNEUROPATHY
     Dosage: 300 MG, 4X/DAY (MOUTH 4 TIMES DAILY WITH FOOD )
     Route: 048
  3. LYRICA [Suspect]
     Active Substance: PREGABALIN
     Dosage: 600 MG, 2X/DAY (2 CAPSULES)
     Route: 048
  4. LYRICA [Suspect]
     Active Substance: PREGABALIN
     Indication: NEURALGIA
     Dosage: 900 MG, DAILY (TAKE 2 CAPSULES IN THE MORNING AND 1 CAPSULE AT NIGHT)
     Route: 048
  5. LYRICA [Suspect]
     Active Substance: PREGABALIN
     Dosage: 300 MG, 4X/DAY (TAKE 1 CAPSULE BY MOUTH 4 TIMES DAILY WITH FOOD)
     Route: 048
     Dates: start: 20190122, end: 2019
  6. LYRICA [Suspect]
     Active Substance: PREGABALIN
     Dosage: 300 MG, 4X/DAY (4 TIMES DAILY WITH FOOD)
     Route: 048
     Dates: start: 20190417, end: 2019
  7. LYRICA [Suspect]
     Active Substance: PREGABALIN
     Dosage: 1200 MG, DAILY
     Dates: start: 2019

REACTIONS (4)
  - Seizure [Unknown]
  - Overweight [Unknown]
  - Prescribed overdose [Unknown]
  - Circumstance or information capable of leading to medication error [Unknown]
